FAERS Safety Report 6431358-X (Version None)
Quarter: 2009Q4

REPORT INFORMATION
  Report Type: 
  Country: None (occurrence: None)
  Receive Date: 20091106
  Receipt Date: 20091027
  Transmission Date: 20100525
  Serious: Yes (Disabling, Other)
  Sender: FDA-Public Use
  Company Number: GB-ABBOTT-09P-167-0605107-00

PATIENT
  Age: 41 Year
  Sex: Female

DRUGS (6)
  1. NORVIR [Suspect]
     Indication: HIV INFECTION
     Dates: start: 20070227
  2. PREZISTA [Interacting]
     Indication: HIV INFECTION
     Route: 048
     Dates: start: 20070227, end: 20080219
  3. MIRTAZAPINE [Interacting]
     Indication: DEPRESSION
     Dates: start: 20070724
  4. TMC 125 [Concomitant]
     Indication: HIV INFECTION
     Route: 048
     Dates: start: 20070227
  5. TRUVADA [Concomitant]
     Indication: HIV INFECTION
     Dates: start: 20070227
  6. METHADONE [Concomitant]
     Indication: DRUG USE FOR UNKNOWN INDICATION

REACTIONS (3)
  - DRUG INTERACTION [None]
  - LIPOHYPERTROPHY [None]
  - WEIGHT INCREASED [None]
